FAERS Safety Report 4687207-3 (Version None)
Quarter: 2005Q2

REPORT INFORMATION
  Report Type: 
  Country: None (occurrence: None)
  Receive Date: 20050606
  Receipt Date: 20050530
  Transmission Date: 20051028
  Serious: Yes (Hospitalization)
  Sender: FDA-Public Use
  Company Number: CA-2005-008147

PATIENT
  Age: 66 Year
  Sex: Female

DRUGS (4)
  1. BETASERON [Suspect]
     Indication: RELAPSING-REMITTING MULTIPLE SCLEROSIS
     Dosage: 8 MIU, EVERY 2 D, SUBCUTANEOUS
     Route: 058
     Dates: start: 20011211
  2. CALCIUM (CALCIUM) [Concomitant]
  3. VITAMIN D [Concomitant]
  4. ETIDRONATE DISODIUM [Concomitant]

REACTIONS (1)
  - BENIGN BREAST NEOPLASM [None]
